FAERS Safety Report 22654960 (Version 1)
Quarter: 2023Q2

REPORT INFORMATION
  Report Type: Spontaneous
  Country: US (occurrence: US)
  Receive Date: 20230629
  Receipt Date: 20230629
  Transmission Date: 20230721
  Serious: Yes (Other)
  Sender: FDA-Public Use
  Company Number: US-BAYER-2023A087426

PATIENT

DRUGS (1)
  1. AFRIN ALLERGY SINUS NASAL [Suspect]
     Active Substance: OXYMETAZOLINE HYDROCHLORIDE
     Dosage: UNK

REACTIONS (3)
  - Drug dependence [None]
  - Sinusitis [None]
  - Incorrect product administration duration [None]
